FAERS Safety Report 12111428 (Version 1)
Quarter: 2016Q1

REPORT INFORMATION
  Report Type: Spontaneous
  Country: US (occurrence: US)
  Receive Date: 20160224
  Receipt Date: 20160224
  Transmission Date: 20160526
  Serious: No
  Sender: FDA-Public Use
  Company Number: US-JAZZ-2015-US-012443

PATIENT
  Age: 56 Year
  Sex: Male

DRUGS (4)
  1. HYDROMORPHONE HCL [Suspect]
     Active Substance: HYDROMORPHONE HYDROCHLORIDE
     Indication: INTERVERTEBRAL DISC DEGENERATION
  2. PRIALT [Suspect]
     Active Substance: ZICONOTIDE ACETATE
     Indication: PATHOLOGICAL FRACTURE
  3. HYDROMORPHONE HCL [Suspect]
     Active Substance: HYDROMORPHONE HYDROCHLORIDE
     Indication: PATHOLOGICAL FRACTURE
  4. PRIALT [Suspect]
     Active Substance: ZICONOTIDE ACETATE
     Indication: INTERVERTEBRAL DISC DEGENERATION
     Dosage: UNK ?G, QH
     Route: 037

REACTIONS (2)
  - Hallucination [Unknown]
  - Paranoia [Unknown]

NARRATIVE: CASE EVENT DATE: 20150820
